FAERS Safety Report 21915666 (Version 1)
Quarter: 2023Q1

REPORT INFORMATION
  Report Type: Spontaneous
  Country: BE (occurrence: BE)
  Receive Date: 20230126
  Receipt Date: 20230126
  Transmission Date: 20230418
  Serious: Yes (Death, Other)
  Sender: FDA-Public Use
  Company Number: BE-PFM-2023-00410

PATIENT

DRUGS (6)
  1. PROPRANOLOL [Suspect]
     Active Substance: PROPRANOLOL HYDROCHLORIDE
     Indication: Gastrooesophageal variceal haemorrhage prophylaxis
     Dosage: UNK
     Route: 065
  2. PROPRANOLOL [Suspect]
     Active Substance: PROPRANOLOL HYDROCHLORIDE
     Indication: Off label use
  3. TRAZODONE [Suspect]
     Active Substance: TRAZODONE HYDROCHLORIDE
     Indication: Product used for unknown indication
     Dosage: UNK
     Route: 065
  4. CITALOPRAM [Suspect]
     Active Substance: CITALOPRAM HYDROBROMIDE
     Indication: Product used for unknown indication
     Dosage: UNK
     Route: 065
  5. ZOLPIDEM [Suspect]
     Active Substance: ZOLPIDEM TARTRATE
     Indication: Product used for unknown indication
     Dosage: UNK
     Route: 065
  6. SOMATOSTATIN [Suspect]
     Active Substance: SOMATOSTATIN
     Indication: Gastrooesophageal variceal haemorrhage prophylaxis
     Dosage: UNK
     Route: 065

REACTIONS (15)
  - General physical health deterioration [Fatal]
  - Haematemesis [Unknown]
  - Electrocardiogram QT prolonged [Unknown]
  - Oesophageal haemorrhage [Unknown]
  - Epilepsy [Unknown]
  - Cerebral gas embolism [Unknown]
  - Pneumothorax [Unknown]
  - Hemiparesis [Unknown]
  - Unresponsive to stimuli [Unknown]
  - Neurologic neglect syndrome [Unknown]
  - Epigastric discomfort [Unknown]
  - Oesophagitis [Unknown]
  - Product use in unapproved indication [Unknown]
  - Product use issue [Unknown]
  - Off label use [Unknown]
